FAERS Safety Report 4988421-X (Version None)
Quarter: 2006Q2

REPORT INFORMATION
  Report Type: 
  Country: None (occurrence: None)
  Receive Date: 20060502
  Receipt Date: 20060323
  Transmission Date: 20061013
  Serious: Yes (Hospitalization, Other)
  Sender: FDA-Public Use
  Company Number: JP-BRISTOL-MYERS SQUIBB COMPANY-13331160

PATIENT
  Age: 80 Year
  Sex: Male

DRUGS (18)
  1. MEVALOTIN [Suspect]
     Indication: HYPERLIPIDAEMIA
     Route: 048
     Dates: start: 19960101, end: 20060317
  2. PERSELIN [Suspect]
     Indication: BENIGN PROSTATIC HYPERPLASIA
     Route: 048
  3. ACINON [Concomitant]
     Indication: GASTRODUODENAL ULCER
     Route: 048
     Dates: end: 20060317
  4. HARNAL [Concomitant]
     Indication: BENIGN PROSTATIC HYPERPLASIA
     Route: 048
  5. SEDAPRAN [Concomitant]
     Indication: INSOMNIA
     Route: 048
     Dates: start: 19981124, end: 20060317
  6. BANAN [Concomitant]
     Indication: ACUTE SINUSITIS
     Route: 048
     Dates: start: 20060316, end: 20060317
  7. MUCODYNE [Concomitant]
     Indication: ACUTE SINUSITIS
     Route: 048
     Dates: start: 20060316, end: 20060317
  8. EXCELASE [Concomitant]
     Indication: GASTRODUODENAL ULCER
     Route: 048
     Dates: end: 20060317
  9. PURSENNID [Concomitant]
     Indication: CONSTIPATION
     Route: 048
  10. ASVERIN [Concomitant]
     Indication: ACUTE SINUSITIS
     Route: 048
     Dates: start: 20060316, end: 20060317
  11. ZYRTEC [Concomitant]
     Indication: ACUTE SINUSITIS
     Route: 048
     Dates: start: 20060316, end: 20060317
  12. LIDOCAINE HCL [Concomitant]
     Indication: ENDOSCOPY
     Route: 048
     Dates: start: 20060317, end: 20060317
  13. XYLOCAINE [Concomitant]
     Indication: ENDOSCOPY
     Route: 048
     Dates: start: 20060317, end: 20060317
  14. INDIGO CARMINE [Concomitant]
     Indication: ENDOSCOPY
     Route: 048
     Dates: start: 20060317, end: 20060317
  15. ALLOID [Concomitant]
     Indication: ENDOSCOPY
     Route: 048
     Dates: start: 20060317, end: 20060317
  16. BAROS [Concomitant]
     Indication: ENDOSCOPY
     Route: 048
     Dates: start: 20060317, end: 20060317
  17. MARZULENE-S [Concomitant]
     Indication: GASTRODUODENAL ULCER
     Route: 048
     Dates: end: 20060317
  18. PRONASE [Concomitant]
     Indication: ENDOSCOPY
     Route: 048
     Dates: start: 20060317, end: 20060317

REACTIONS (6)
  - ACUTE SINUSITIS [None]
  - BENIGN PROSTATIC HYPERPLASIA [None]
  - GASTRIC CANCER [None]
  - GASTRODUODENAL ULCER [None]
  - RENAL FAILURE [None]
  - RHABDOMYOLYSIS [None]
